FAERS Safety Report 6581718-1 (Version None)
Quarter: 2010Q1

REPORT INFORMATION
  Report Type: 
  Country: None (occurrence: None)
  Receive Date: 20100215
  Receipt Date: 20100201
  Transmission Date: 20100710
  Serious: Yes (Hospitalization, Other)
  Sender: FDA-Public Use
  Company Number: PHHY2009ZA50163

PATIENT
  Age: 31 Year
  Sex: Male

DRUGS (5)
  1. RITALIN-SR [Suspect]
     Indication: PSYCHOMOTOR HYPERACTIVITY
     Dosage: 15 MG, BID
  2. EFFEXOR [Concomitant]
     Dosage: 75 MG, QD
  3. RIVOTRIL [Concomitant]
     Dosage: 1 MG, BID
  4. AMISULPHURIDE [Concomitant]
     Dosage: 100 MG, QHS
  5. ZOPICLONE [Concomitant]
     Dosage: 75 MG, QHS

REACTIONS (33)
  - AGITATION [None]
  - ANGER [None]
  - ANXIETY [None]
  - BRUXISM [None]
  - CONDITION AGGRAVATED [None]
  - DISORIENTATION [None]
  - DISTURBANCE IN ATTENTION [None]
  - DIZZINESS [None]
  - DRUG DEPENDENCE [None]
  - DRUG INEFFECTIVE [None]
  - DRY EYE [None]
  - EAR DISCOMFORT [None]
  - EUPHORIC MOOD [None]
  - EYE DISORDER [None]
  - EYE PAIN [None]
  - FATIGUE [None]
  - FEELING ABNORMAL [None]
  - HEAD DISCOMFORT [None]
  - HOT FLUSH [None]
  - HYPOAESTHESIA [None]
  - MENTAL DISORDER [None]
  - MOVEMENT DISORDER [None]
  - MUSCULOSKELETAL STIFFNESS [None]
  - NERVOUS SYSTEM DISORDER [None]
  - NIGHTMARE [None]
  - PANIC ATTACK [None]
  - PANIC DISORDER [None]
  - SOMATOFORM DISORDER [None]
  - SOMNOLENCE [None]
  - SPEECH DISORDER [None]
  - STRESS [None]
  - TOURETTE'S DISORDER [None]
  - VERTIGO [None]
